FAERS Safety Report 12347145 (Version 1)
Quarter: 2016Q2

REPORT INFORMATION
  Report Type: Spontaneous
  Country: US (occurrence: None)
  Receive Date: 20160506
  Receipt Date: 20160506
  Transmission Date: 20160815
  Serious: Yes (Death)
  Sender: FDA-Public Use
  Company Number: None

PATIENT
  Age: 88 Year
  Sex: Male
  Weight: 101.5 kg

DRUGS (1)
  1. DABIGATRAN [Suspect]
     Active Substance: DABIGATRAN
     Indication: ATRIAL FIBRILLATION
     Route: 048

REACTIONS (8)
  - Fall [None]
  - Chromaturia [None]
  - Back pain [None]
  - Condition aggravated [None]
  - Haemoglobin decreased [None]
  - Muscle haemorrhage [None]
  - Pleural effusion [None]
  - Blood creatinine increased [None]

NARRATIVE: CASE EVENT DATE: 20160403
